FAERS Safety Report 4801197-1 (Version None)
Quarter: 2005Q4

REPORT INFORMATION
  Report Type: 
  Country: None (occurrence: None)
  Receive Date: 20051011
  Receipt Date: 20050919
  Transmission Date: 20060501
  Serious: Yes (Other)
  Sender: FDA-Public Use
  Company Number: PAR_0362_2005

PATIENT
  Age: 25 Year
  Sex: Female

DRUGS (5)
  1. ADVIL [Suspect]
     Dosage: 2 DF ONCE PO
     Route: 048
     Dates: start: 20040801, end: 20040801
  2. NAPROXEN SODIUM [Suspect]
     Dosage: 8 DF ONCE PO
     Route: 048
     Dates: start: 20040801, end: 20040801
  3. VALIUM [Suspect]
     Dosage: 2 DF ONCE PO
     Route: 048
     Dates: start: 20050801, end: 20050801
  4. PAXIL [Suspect]
     Dosage: 600 MG ONCE PO
     Route: 048
     Dates: start: 20040801, end: 20040801
  5. NYQUIL [Suspect]
     Dosage: DF ONCE PO
     Route: 048
     Dates: start: 20040801, end: 20040801

REACTIONS (3)
  - INTENTIONAL DRUG MISUSE [None]
  - OVERDOSE [None]
  - SOMNOLENCE [None]
